FAERS Safety Report 9868601 (Version 1)
Quarter: 2014Q1

REPORT INFORMATION
  Report Type: Spontaneous
  Country: US (occurrence: US)
  Receive Date: 20140204
  Receipt Date: 20140204
  Transmission Date: 20141002
  Serious: No
  Sender: FDA-Public Use
  Company Number: US-PFIZER INC-2014030488

PATIENT
  Age: 59 Year
  Sex: Female

DRUGS (6)
  1. LYRICA [Suspect]
     Dosage: 300 MG, 2 TIMES A DAY
     Route: 048
  2. LYRICA [Suspect]
     Dosage: 150 MG, 4X/DAY
     Route: 048
  3. NORVASC [Suspect]
     Dosage: UNK
     Route: 048
  4. HYDROCODONE W/ACETAMINOPHEN [Concomitant]
     Dosage: HYDROCODONE 5/ ACETAMINOPHEN 325
  5. AMLODIPINE BESYLATE [Concomitant]
     Dosage: 5 MG, UNK
  6. TIZANIDINE HYDROCHLORIDE [Concomitant]
     Dosage: 4 MG, UNK

REACTIONS (2)
  - Malaise [Unknown]
  - Drug intolerance [Unknown]
